FAERS Safety Report 19088587 (Version 1)
Quarter: 2021Q2

REPORT INFORMATION
  Report Type: Spontaneous
  Country: US (occurrence: US)
  Receive Date: 20210402
  Receipt Date: 20210402
  Transmission Date: 20210717
  Serious: No
  Sender: FDA-Public Use
  Company Number: US-PERRIGO-20US012006

PATIENT
  Age: 74 Year
  Sex: Female
  Weight: 49.89 kg

DRUGS (1)
  1. GENTAMICIN SULFATE. [Suspect]
     Active Substance: GENTAMICIN SULFATE
     Indication: LOCALISED INFECTION
     Dosage: PEA SIZE AMOUNT, TID
     Route: 061
     Dates: start: 20200814, end: 20200818

REACTIONS (2)
  - Drug ineffective [Unknown]
  - Renal pain [Not Recovered/Not Resolved]

NARRATIVE: CASE EVENT DATE: 202008
